FAERS Safety Report 16118745 (Version 1)
Quarter: 2019Q1

REPORT INFORMATION
  Report Type: Spontaneous
  Country: FR (occurrence: FR)
  Receive Date: 20190326
  Receipt Date: 20190326
  Transmission Date: 20190418
  Serious: Yes (Death)
  Sender: FDA-Public Use
  Company Number: FR-JNJFOC-20190334969

PATIENT
  Age: 57 Year
  Sex: Male
  Weight: 60 kg

DRUGS (5)
  1. XARELTO [Suspect]
     Active Substance: RIVAROXABAN
     Indication: ATRIAL FIBRILLATION
     Route: 048
  2. HEPARIN [Suspect]
     Active Substance: HEPARIN SODIUM
     Indication: DEVICE OCCLUSION
     Route: 042
  3. KARDEGIC [Suspect]
     Active Substance: ASPIRIN DL-LYSINE
     Indication: DEVICE OCCLUSION
     Route: 048
  4. REOPRO [Suspect]
     Active Substance: ABCIXIMAB
     Indication: DEVICE OCCLUSION
     Route: 042
  5. BRILIQUE [Suspect]
     Active Substance: TICAGRELOR
     Indication: DEVICE OCCLUSION
     Route: 048

REACTIONS (3)
  - Subdural haematoma [Fatal]
  - Haemorrhage intracranial [Fatal]
  - Brain herniation [Fatal]

NARRATIVE: CASE EVENT DATE: 20180628
